FAERS Safety Report 15764440 (Version 1)
Quarter: 2018Q4

REPORT INFORMATION
  Report Type: Spontaneous
  Country: US (occurrence: US)
  Receive Date: 20181226
  Receipt Date: 20181226
  Transmission Date: 20190205
  Serious: Yes (Life-Threatening, Hospitalization, Disabling, Other)
  Sender: FDA-Public Use
  Company Number: None

PATIENT
  Age: 62 Year
  Sex: Female
  Weight: 45 kg

DRUGS (1)
  1. ZOMIG [Suspect]
     Active Substance: ZOLMITRIPTAN
     Indication: MIGRAINE
     Dosage: ?          QUANTITY:1 SPRAY(S);?
     Route: 055
     Dates: start: 20101031, end: 20180420

REACTIONS (5)
  - Malaise [None]
  - Septic shock [None]
  - Loss of consciousness [None]
  - Multiple organ dysfunction syndrome [None]
  - Intestinal ischaemia [None]

NARRATIVE: CASE EVENT DATE: 20180422
